FAERS Safety Report 25367126 (Version 1)
Quarter: 2025Q2

REPORT INFORMATION
  Report Type: Spontaneous
  Country: US (occurrence: US)
  Receive Date: 20250528
  Receipt Date: 20250528
  Transmission Date: 20250716
  Serious: Yes (Hospitalization, Other)
  Sender: ABBVIE
  Company Number: US-ABBVIE-5994962

PATIENT
  Age: 37 Year
  Sex: Female

DRUGS (9)
  1. HUMIRA [Suspect]
     Active Substance: ADALIMUMAB
     Indication: Crohn^s disease
     Route: 058
     Dates: start: 20080609, end: 20090117
  2. HUMIRA [Suspect]
     Active Substance: ADALIMUMAB
     Indication: Crohn^s disease
  3. ENTOCORT EC [Suspect]
     Active Substance: BUDESONIDE
     Indication: Product used for unknown indication
     Route: 050
  4. ENTYVIO [Suspect]
     Active Substance: VEDOLIZUMAB
     Indication: Product used for unknown indication
     Route: 065
  5. ENTYVIO [Suspect]
     Active Substance: VEDOLIZUMAB
     Indication: Product used for unknown indication
     Route: 065
     Dates: start: 20211202
  6. ENTYVIO [Suspect]
     Active Substance: VEDOLIZUMAB
     Indication: Product used for unknown indication
     Route: 065
  7. ENTYVIO [Suspect]
     Active Substance: VEDOLIZUMAB
     Indication: Product used for unknown indication
     Route: 065
     Dates: start: 20220110
  8. ENTYVIO [Suspect]
     Active Substance: VEDOLIZUMAB
     Indication: Product used for unknown indication
     Route: 065
     Dates: start: 20220110
  9. ENTYVIO [Suspect]
     Active Substance: VEDOLIZUMAB
     Indication: Product used for unknown indication
     Route: 065
     Dates: start: 2017

REACTIONS (74)
  - Hysterectomy [Unknown]
  - Nausea [Recovered/Resolved]
  - Headache [Recovered/Resolved]
  - Hypokalaemia [Recovered/Resolved]
  - Fatigue [Recovered/Resolved]
  - Insomnia [Unknown]
  - Decreased appetite [Recovered/Resolved]
  - Weight decreased [Recovered/Resolved]
  - Syncope [Unknown]
  - Stress [Unknown]
  - Dysphonia [Recovered/Resolved]
  - Temperature intolerance [Recovered/Resolved]
  - Cough [Recovered/Resolved]
  - Flatulence [Unknown]
  - Chest pain [Recovered/Resolved]
  - Neck pain [Unknown]
  - Pain [Unknown]
  - Haematocrit decreased [Unknown]
  - Blood chloride increased [Unknown]
  - Injection site pain [Recovered/Resolved]
  - Abdominal distension [Recovered/Resolved]
  - Weight increased [Recovered/Resolved]
  - Hypomagnesaemia [Unknown]
  - Dysaesthesia [Unknown]
  - Pyrexia [Recovered/Resolved]
  - Hypotension [Unknown]
  - Fall [Unknown]
  - Constipation [Recovered/Resolved]
  - Dyspnoea [Recovered/Resolved]
  - Diarrhoea [Unknown]
  - Colitis [Unknown]
  - Enteritis infectious [Unknown]
  - Muscle spasms [Unknown]
  - Peptic ulcer [Unknown]
  - Proctalgia [Unknown]
  - Vomiting [Recovered/Resolved]
  - Haematocrit decreased [Unknown]
  - Abdominal pain [Unknown]
  - Palpitations [Unknown]
  - Fatigue [Unknown]
  - Arthralgia [Unknown]
  - Hyperhidrosis [Unknown]
  - Dry mouth [Unknown]
  - Blood albumin decreased [Unknown]
  - Haemoglobin decreased [Unknown]
  - Blood potassium decreased [Unknown]
  - Blood calcium decreased [Unknown]
  - Blood calcium decreased [Unknown]
  - Blood albumin decreased [Unknown]
  - Blood chloride increased [Unknown]
  - Drug tolerance decreased [Recovered/Resolved]
  - Frequent bowel movements [Unknown]
  - Injection site swelling [Recovered/Resolved]
  - Myalgia [Unknown]
  - Arthralgia [Unknown]
  - Back pain [Unknown]
  - Pain in extremity [Unknown]
  - Abdominal lymphadenopathy [Unknown]
  - Drug ineffective [Unknown]
  - Injection site injury [Recovered/Resolved]
  - Enterocolitis [Recovered/Resolved]
  - Bone cyst [Unknown]
  - Intestinal resection [Unknown]
  - Gastrointestinal wall thickening [Unknown]
  - Change of bowel habit [Recovered/Resolved]
  - Crohn^s disease [Unknown]
  - Skin discolouration [Unknown]
  - Dizziness [Unknown]
  - Dizziness [Unknown]
  - Drug ineffective [Unknown]
  - Abdominal distension [Unknown]
  - Abdominal hernia [Unknown]
  - Loss of personal independence in daily activities [Unknown]
  - Arthropathy [Unknown]

NARRATIVE: CASE EVENT DATE: 20200218
